FAERS Safety Report 8357728 (Version 3)
Quarter: 2013Q2

REPORT INFORMATION
  Report Type: Spontaneous
  Country: TR (occurrence: TR)
  Receive Date: 20120127
  Receipt Date: 20130426
  Transmission Date: 20140414
  Serious: Yes (Other)
  Sender: FDA-Public Use
  Company Number: TR-MPIJNJ-2012-00444

PATIENT
  Sex: 0

DRUGS (4)
  1. VELCADE [Suspect]
     Indication: PLASMA CELL MYELOMA
     Dosage: 1.3 MG/M2, UNK
     Route: 065
     Dates: start: 20120113, end: 20120117
  2. LASIX                              /00032601/ [Concomitant]
     Indication: DIURETIC THERAPY
     Dosage: UNK
     Route: 042
     Dates: start: 20111225
  3. ROCEPHIN                           /00672201/ [Concomitant]
     Indication: ANTIBIOTIC THERAPY
     Dosage: 1 G, BID
     Dates: start: 20111225
  4. LANTUS [Concomitant]
     Dosage: 20 IU, UNK
     Dates: start: 20111225

REACTIONS (2)
  - Eyelid oedema [Recovered/Resolved]
  - Eye swelling [Unknown]
